FAERS Safety Report 14962175 (Version 3)
Quarter: 2020Q1

REPORT INFORMATION
  Report Type: Report from Study
  Country: FR (occurrence: FR)
  Receive Date: 20180601
  Receipt Date: 20200316
  Transmission Date: 20200409
  Serious: Yes (Hospitalization, Other)
  Sender: FDA-Public Use
  Company Number: FR-BRISTOL-MYERS SQUIBB COMPANY-BMS-2018-049533

PATIENT
  Age: 54 Year
  Sex: Male
  Weight: 55 kg

DRUGS (8)
  1. SUTENT [Suspect]
     Active Substance: SUNITINIB MALATE
     Indication: METASTATIC RENAL CELL CARCINOMA
     Dosage: 50 MG, QCYCLE, 4 WEEKS ON/2 WEEKS OFF
     Route: 065
     Dates: start: 20160905, end: 20161121
  2. APROVEL [Concomitant]
     Active Substance: IRBESARTAN
     Indication: HYPERTENSION
     Dosage: 150 MG, UNK
     Route: 065
  3. ESOMEPRAZOLE. [Concomitant]
     Active Substance: ESOMEPRAZOLE MAGNESIUM
     Indication: PRODUCT USED FOR UNKNOWN INDICATION
     Dosage: 1 DF= 20 UNITS NOS
     Route: 048
  4. ATARAX [Concomitant]
     Active Substance: HYDROXYZINE HYDROCHLORIDE
     Indication: PRODUCT USED FOR UNKNOWN INDICATION
     Dosage: 1 DF=25 UNITS NOS
     Route: 048
  5. NIVOLUMAB [Suspect]
     Active Substance: NIVOLUMAB
     Indication: METASTATIC RENAL CELL CARCINOMA
     Dosage: UNK
     Route: 042
     Dates: start: 20170224
  6. CABOZANTINIB [Suspect]
     Active Substance: CABOZANTINIB
     Indication: RENAL CANCER METASTATIC
     Dosage: UNK
     Route: 048
     Dates: start: 20170816
  7. SUTENT [Suspect]
     Active Substance: SUNITINIB MALATE
     Indication: PRODUCT USED FOR UNKNOWN INDICATION
     Dosage: 37.5 MILLIGRAM,QCYCLE, 2 WEEKS ON1 WEEKS OFF
     Route: 065
     Dates: start: 20160905, end: 20170205
  8. SUTENT [Suspect]
     Active Substance: SUNITINIB MALATE
     Indication: PRODUCT USED FOR UNKNOWN INDICATION
     Dosage: 37.5 MG, QCYCLE, 4 WEEKS ON/2 WEEKS OFF
     Route: 065
     Dates: start: 20161121

REACTIONS (21)
  - Abdominal discomfort [Recovered/Resolved]
  - Musculoskeletal pain [Not Recovered/Not Resolved]
  - Renal failure [Not Recovered/Not Resolved]
  - Nail dystrophy [Recovered/Resolved]
  - Lacrimation increased [Unknown]
  - Gingival bleeding [Unknown]
  - Eyelid oedema [Recovered/Resolved]
  - Anorectal discomfort [Not Recovered/Not Resolved]
  - Back pain [Recovered/Resolved]
  - Hypertension [Unknown]
  - Dysgeusia [Unknown]
  - Xeroderma [Recovered/Resolved]
  - Haemorrhage [Unknown]
  - Palmar-plantar erythrodysaesthesia syndrome [Recovered/Resolved]
  - Hiccups [Recovered/Resolved]
  - Asthenia [Not Recovered/Not Resolved]
  - Mucosal inflammation [Recovered/Resolved]
  - Dry mouth [Not Recovered/Not Resolved]
  - Rectal haemorrhage [Unknown]
  - Arthralgia [Not Recovered/Not Resolved]
  - Headache [Not Recovered/Not Resolved]

NARRATIVE: CASE EVENT DATE: 20161017
